FAERS Safety Report 9334666 (Version 1)
Quarter: 2013Q2

REPORT INFORMATION
  Report Type: Spontaneous
  Country: US (occurrence: US)
  Receive Date: 20130606
  Receipt Date: 20130606
  Transmission Date: 20140414
  Serious: No
  Sender: FDA-Public Use
  Company Number: US-AMGEN-USASP2013034479

PATIENT
  Age: 68 Year
  Sex: Female

DRUGS (5)
  1. PROLIA [Suspect]
     Indication: PRODUCT USED FOR UNKNOWN INDICATION
     Dosage: UNK
     Dates: start: 20120515
  2. CELEBREX [Concomitant]
  3. CALCIUM [Concomitant]
  4. VITAMIN D                          /00107901/ [Concomitant]
  5. ARMOUR THYROID [Concomitant]

REACTIONS (3)
  - Rash macular [Unknown]
  - Dysuria [Unknown]
  - Cystitis [Unknown]
